FAERS Safety Report 20005822 (Version 1)
Quarter: 2021Q4

REPORT INFORMATION
  Report Type: Spontaneous
  Country: US (occurrence: US)
  Receive Date: 20211028
  Receipt Date: 20211028
  Transmission Date: 20220303
  Serious: Yes (Hospitalization)
  Sender: FDA-Public Use
  Company Number: None

PATIENT
  Age: 64 Year
  Sex: Male
  Weight: 136.1 kg

DRUGS (1)
  1. RITUXIMAB [Suspect]
     Active Substance: RITUXIMAB
     Dates: end: 20211012

REACTIONS (4)
  - Pyrexia [None]
  - Dyspnoea [None]
  - Cough [None]
  - Neutrophil count decreased [None]

NARRATIVE: CASE EVENT DATE: 20211027
